FAERS Safety Report 6402051-4 (Version None)
Quarter: 2009Q4

REPORT INFORMATION
  Report Type: 
  Country: None (occurrence: None)
  Receive Date: 20091013
  Receipt Date: 20091002
  Transmission Date: 20100525
  Serious: Yes (Hospitalization)
  Sender: FDA-Public Use
  Company Number: CIO09017938

PATIENT
  Age: 87 Year
  Sex: Female

DRUGS (1)
  1. VAPORUB, REGULAR SCENT(CAMPHOR 143.07 MG, CEDAR LEAF OIL 20.4 MG, EUCA [Suspect]
     Dosage: 1 APPLIC, AS NEEDED, INTRANASAL
     Route: 045

REACTIONS (5)
  - DRUG ADMINISTERED AT INAPPROPRIATE SITE [None]
  - EPISTAXIS [None]
  - MALAISE [None]
  - MULTIPLE ALLERGIES [None]
  - NASAL DISCOMFORT [None]
